FAERS Safety Report 10380322 (Version 4)
Quarter: 2017Q4

REPORT INFORMATION
  Report Type: Report from Study
  Country: JP (occurrence: JP)
  Receive Date: 20140813
  Receipt Date: 20171025
  Transmission Date: 20180320
  Serious: Yes (Death, Life-Threatening)
  Sender: FDA-Public Use
  Company Number: JP-ROCHE-1446075

PATIENT
  Age: 62 Year
  Sex: Female
  Weight: 50 kg

DRUGS (2)
  1. BEVACIZUMAB. [Suspect]
     Active Substance: BEVACIZUMAB
     Indication: BREAST CANCER METASTATIC
     Route: 041
     Dates: start: 20140328, end: 20140722
  2. PACLITAXEL. [Suspect]
     Active Substance: PACLITAXEL
     Indication: BREAST CANCER METASTATIC
     Dosage: 120 MG
     Route: 041
     Dates: start: 20140328, end: 20140722

REACTIONS (18)
  - Cellulitis [Recovering/Resolving]
  - Hypocalcaemia [Not Recovered/Not Resolved]
  - Leukopenia [Unknown]
  - Cough [Recovering/Resolving]
  - Hypertension [Recovering/Resolving]
  - Neutrophil count decreased [Not Recovered/Not Resolved]
  - Neuropathy peripheral [Not Recovered/Not Resolved]
  - Erythema [Recovering/Resolving]
  - Hepatic failure [Fatal]
  - Aspartate aminotransferase increased [Unknown]
  - Platelet count decreased [Not Recovered/Not Resolved]
  - Hypertension [Recovering/Resolving]
  - Hyponatraemia [Recovering/Resolving]
  - Disseminated intravascular coagulation [Fatal]
  - Hypoalbuminaemia [Not Recovered/Not Resolved]
  - Neutrophil count decreased [Unknown]
  - Alanine aminotransferase increased [Unknown]
  - Hypokalaemia [Recovering/Resolving]

NARRATIVE: CASE EVENT DATE: 20140404
